FAERS Safety Report 11120653 (Version 1)
Quarter: 2015Q2

REPORT INFORMATION
  Report Type: Spontaneous
  Country: US (occurrence: US)
  Receive Date: 20150519
  Receipt Date: 20150519
  Transmission Date: 20150821
  Serious: Yes (Hospitalization, Other)
  Sender: FDA-Public Use
  Company Number: US-BAYER-2015-199498

PATIENT
  Age: 16 Year
  Sex: Female

DRUGS (1)
  1. CIPRO [Suspect]
     Active Substance: CIPROFLOXACIN HYDROCHLORIDE
     Indication: URINARY TRACT INFECTION
     Dosage: 500 MG, BID
     Dates: start: 20150217, end: 20150224

REACTIONS (48)
  - Nausea [Recovered/Resolved]
  - Hallucination [Recovered/Resolved]
  - Meningitis [None]
  - Brain neoplasm [None]
  - Hand-eye coordination impaired [None]
  - Weight decreased [None]
  - Hypoaesthesia [Not Recovered/Not Resolved]
  - Decreased appetite [Not Recovered/Not Resolved]
  - Tenderness [Recovered/Resolved]
  - Abdominal pain [None]
  - Headache [Not Recovered/Not Resolved]
  - Paranoia [Recovered/Resolved]
  - Confusional state [Recovered/Resolved]
  - Chills [Recovered/Resolved]
  - Pain [None]
  - Fatigue [None]
  - Abnormal behaviour [None]
  - Mood swings [None]
  - Tinnitus [None]
  - Arthralgia [Not Recovered/Not Resolved]
  - Speech disorder [Recovered/Resolved]
  - Asthenia [Not Recovered/Not Resolved]
  - Myalgia [None]
  - Insomnia [None]
  - Abasia [None]
  - Neuralgia [Not Recovered/Not Resolved]
  - Cognitive disorder [Recovered/Resolved]
  - Pyrexia [Recovered/Resolved]
  - Chest pain [Not Recovered/Not Resolved]
  - Abnormal behaviour [Recovered/Resolved]
  - Food intolerance [Not Recovered/Not Resolved]
  - Memory impairment [None]
  - Activities of daily living impaired [None]
  - Malaise [None]
  - Paraesthesia [Not Recovered/Not Resolved]
  - Abdominal pain [Recovered/Resolved]
  - Encephalitis [None]
  - Photophobia [Not Recovered/Not Resolved]
  - Depression [None]
  - Staring [None]
  - Mood swings [Recovered/Resolved]
  - Nightmare [None]
  - Anxiety [Recovered/Resolved]
  - Asthenia [None]
  - Dysgeusia [None]
  - Panic attack [None]
  - Flank pain [Recovered/Resolved]
  - Fatigue [Not Recovered/Not Resolved]

NARRATIVE: CASE EVENT DATE: 2015
